FAERS Safety Report 15410739 (Version 2)
Quarter: 2019Q1

REPORT INFORMATION
  Report Type: Spontaneous
  Country: GB (occurrence: GB)
  Receive Date: 20180921
  Receipt Date: 20190220
  Transmission Date: 20190417
  Serious: Yes (Other)
  Sender: FDA-Public Use
  Company Number: GB-CONCORDIA PHARMACEUTICALS INC.-E2B_00016734

PATIENT
  Age: 58 Year
  Sex: Male

DRUGS (1)
  1. PREDNISOLONE. [Suspect]
     Active Substance: PREDNISOLONE
     Indication: METASTATIC CUTANEOUS CROHN^S DISEASE
     Dosage: UP TO 0.5 MG/KG/DAY

REACTIONS (3)
  - Osteoporosis [Unknown]
  - Lumbar vertebral fracture [Unknown]
  - Osteoporotic fracture [Unknown]
